FAERS Safety Report 7807950-4 (Version None)
Quarter: 2011Q4

REPORT INFORMATION
  Report Type: 
  Country: None (occurrence: None)
  Receive Date: 20111011
  Receipt Date: 20111011
  Transmission Date: 20120403
  Serious: Yes (Other)
  Sender: FDA-Public Use
  Company Number: None

PATIENT
  Age: 17 Year
  Sex: Female
  Weight: 68.038 kg

DRUGS (1)
  1. RISPERIDONE [Suspect]
     Indication: MAJOR DEPRESSION
     Dosage: 0.5 MG
     Dates: start: 20110929, end: 20111006

REACTIONS (3)
  - TREMOR [None]
  - DIZZINESS [None]
  - TIC [None]
